FAERS Safety Report 21765310 (Version 1)
Quarter: 2022Q4

REPORT INFORMATION
  Report Type: Spontaneous
  Country: US (occurrence: US)
  Receive Date: 20221222
  Receipt Date: 20221222
  Transmission Date: 20230113
  Serious: No
  Sender: FDA-Public Use
  Company Number: US-GSKCCFUS-Case-01586043_AE-89598

PATIENT
  Sex: Male

DRUGS (1)
  1. TRELEGY ELLIPTA [Suspect]
     Active Substance: FLUTICASONE FUROATE\UMECLIDINIUM BROMIDE\VILANTEROL TRIFENATATE
     Indication: Product used for unknown indication
     Dosage: 1 PUFF(S), QD 100/62.5/25 MCG

REACTIONS (5)
  - Nervousness [Not Recovered/Not Resolved]
  - Candida infection [Unknown]
  - Aphonia [Unknown]
  - Nausea [Not Recovered/Not Resolved]
  - Wrong technique in device usage process [Unknown]
